FAERS Safety Report 7793489-1 (Version None)
Quarter: 2011Q4

REPORT INFORMATION
  Report Type: 
  Country: None (occurrence: None)
  Receive Date: 20111003
  Receipt Date: 20110925
  Transmission Date: 20120403
  Serious: Yes (Other)
  Sender: FDA-Public Use
  Company Number: US-BAYER-2011-092267

PATIENT
  Sex: Male

DRUGS (2)
  1. AVELOX [Suspect]
  2. CIPROFLOXACIN [Suspect]

REACTIONS (3)
  - ARTHROPATHY [None]
  - TENDON DISORDER [None]
  - CHONDROPATHY [None]
